FAERS Safety Report 9226406 (Version 1)
Quarter: 2013Q2

REPORT INFORMATION
  Report Type: Spontaneous
  Country: DE (occurrence: DE)
  Receive Date: 20130411
  Receipt Date: 20130411
  Transmission Date: 20140414
  Serious: Yes (Hospitalization)
  Sender: FDA-Public Use
  Company Number: DE-MYLANLABS-2013S1007274

PATIENT
  Age: 2 Year
  Sex: Female
  Weight: 10 kg

DRUGS (5)
  1. LOPERAMIDE [Suspect]
     Indication: ACCIDENTAL EXPOSURE TO PRODUCT
     Route: 048
  2. PARASINUS [Suspect]
     Indication: ACCIDENTAL EXPOSURE TO PRODUCT
     Route: 048
  3. TONSIPRET [Suspect]
     Indication: ACCIDENTAL EXPOSURE TO PRODUCT
     Route: 048
  4. MAGNESIUM-OPTOPAN [Suspect]
     Indication: ACCIDENTAL EXPOSURE TO PRODUCT
     Route: 048
  5. DICLOFENAC [Suspect]
     Indication: ACCIDENTAL EXPOSURE TO PRODUCT
     Route: 048

REACTIONS (3)
  - Accidental exposure to product [Unknown]
  - No adverse event [Unknown]
  - Accidental exposure to product by child [None]
